FAERS Safety Report 6933757-6 (Version None)
Quarter: 2010Q3

REPORT INFORMATION
  Report Type: 
  Country: None (occurrence: None)
  Receive Date: 20100820
  Receipt Date: 20100810
  Transmission Date: 20110219
  Serious: Yes (Other)
  Sender: FDA-Public Use
  Company Number: US-PFIZER INC-2010100906

PATIENT
  Age: 66 Year
  Sex: Female

DRUGS (4)
  1. CHANTIX [Suspect]
     Indication: SMOKING CESSATION THERAPY
     Dosage: 0.5 MG, 1X/DAY
     Dates: start: 20100808, end: 20100810
  2. REMERON [Interacting]
     Indication: DEPRESSION
     Dosage: UNK
  3. KLONOPIN [Interacting]
     Indication: ANXIETY
     Dosage: UNK
  4. TRAMADOL [Interacting]
     Indication: PAIN
     Dosage: UNK

REACTIONS (7)
  - ARTHRALGIA [None]
  - BACK PAIN [None]
  - DISTURBANCE IN ATTENTION [None]
  - DRUG INTERACTION [None]
  - INSOMNIA [None]
  - NAUSEA [None]
  - RESTLESSNESS [None]
